FAERS Safety Report 24914780 (Version 1)
Quarter: 2025Q1

REPORT INFORMATION
  Report Type: Spontaneous
  Country: ES (occurrence: ES)
  Receive Date: 20250203
  Receipt Date: 20250203
  Transmission Date: 20250409
  Serious: Yes (Hospitalization, Other)
  Sender: AUROBINDO
  Company Number: ES-AEMPS-1621766

PATIENT
  Age: 85 Year
  Sex: Male
  Weight: 72 kg

DRUGS (2)
  1. PIPERACILLIN AND TAZOBACTAM [Interacting]
     Active Substance: PIPERACILLIN SODIUM\TAZOBACTAM SODIUM
     Indication: Cholangitis
     Route: 042
     Dates: start: 20240912
  2. ENOXAPARIN [Interacting]
     Active Substance: ENOXAPARIN
     Indication: Atrial fibrillation
     Dosage: 40 MILLIGRAM, TWO TIMES A DAY
     Route: 058
     Dates: start: 20240912, end: 20240923

REACTIONS (1)
  - Subdural haematoma [Recovering/Resolving]

NARRATIVE: CASE EVENT DATE: 20240922
